FAERS Safety Report 17841553 (Version 1)
Quarter: 2020Q2

REPORT INFORMATION
  Report Type: Spontaneous
  Country: HR (occurrence: HR)
  Receive Date: 20200529
  Receipt Date: 20200529
  Transmission Date: 20200714
  Serious: Yes (Death, Other)
  Sender: FDA-Public Use
  Company Number: HR-AMGEN-HRVSP2020085119

PATIENT
  Sex: Male

DRUGS (1)
  1. KYPROLIS [Suspect]
     Active Substance: CARFILZOMIB
     Indication: PLASMA CELL MYELOMA
     Dosage: UNK
     Route: 065

REACTIONS (4)
  - Cardiovascular symptom [Unknown]
  - Peripheral artery thrombosis [Fatal]
  - Influenza [Unknown]
  - Pneumonia [Unknown]
